FAERS Safety Report 9338759 (Version 2)
Quarter: 2013Q3

REPORT INFORMATION
  Report Type: Spontaneous
  Country: DE (occurrence: DE)
  Receive Date: 20130610
  Receipt Date: 20130711
  Transmission Date: 20140515
  Serious: Yes (Other)
  Sender: FDA-Public Use
  Company Number: DE-ROCHE-1234240

PATIENT
  Sex: Female
  Weight: 79 kg

DRUGS (2)
  1. ROACTEMRA [Suspect]
     Indication: RHEUMATOID ARTHRITIS
     Route: 042
     Dates: start: 20130307, end: 20130502
  2. PREDNISOLON [Concomitant]
     Route: 048

REACTIONS (1)
  - Skin necrosis [Unknown]
